FAERS Safety Report 24408953 (Version 4)
Quarter: 2024Q4

REPORT INFORMATION
  Report Type: Report from Study
  Country: CA (occurrence: CA)
  Receive Date: 20241007
  Receipt Date: 20241218
  Transmission Date: 20250115
  Serious: Yes (Hospitalization, Other)
  Sender: UCB
  Company Number: CA-UCBSA-2023055082

PATIENT
  Sex: Female

DRUGS (4)
  1. BIMEKIZUMAB [Suspect]
     Active Substance: BIMEKIZUMAB
     Indication: Psoriasis
     Dosage: 320 MILLIGRAM, EV 4 WEEKS
     Route: 058
     Dates: start: 20220902, end: 20230104
  2. BIMEKIZUMAB [Suspect]
     Active Substance: BIMEKIZUMAB
     Dosage: 320 MILLIGRAM, EV 8 WEEKS
     Route: 058
     Dates: start: 20230310, end: 20240117
  3. CIMZIA [Suspect]
     Active Substance: CERTOLIZUMAB PEGOL
     Indication: Psoriasis
     Dosage: 400 MILLIGRAM, EV 2 WEEKS(QOW)
     Route: 058
     Dates: start: 20240215
  4. NAPROXEN [Concomitant]
     Active Substance: NAPROXEN
     Indication: Product used for unknown indication
     Dosage: 500 MILLIGRAM, AS NEEDED (PRN)
     Route: 048

REACTIONS (8)
  - Premature delivery [Not Recovered/Not Resolved]
  - Hospitalisation [Unknown]
  - Psoriasis [Not Recovered/Not Resolved]
  - Maternal exposure during pregnancy [Unknown]
  - Maternal exposure before pregnancy [Unknown]
  - Inappropriate schedule of product administration [Unknown]
  - Product dose omission issue [Unknown]
  - Drug ineffective [Unknown]

NARRATIVE: CASE EVENT DATE: 20230101
